FAERS Safety Report 6421442-9 (Version None)
Quarter: 2009Q4

REPORT INFORMATION
  Report Type: 
  Country: None (occurrence: None)
  Receive Date: 20091030
  Receipt Date: 20091020
  Transmission Date: 20100525
  Serious: Yes (Hospitalization, Other)
  Sender: FDA-Public Use
  Company Number: AU-JNJFOC-20091007201

PATIENT
  Sex: Female

DRUGS (12)
  1. REMICADE [Suspect]
     Indication: DRUG USE FOR UNKNOWN INDICATION
     Route: 042
  2. BENZYLPENICILLIN [Suspect]
     Indication: INFECTION
     Route: 042
  3. DEXAMETHASONE [Suspect]
     Indication: LISTERIOSIS
  4. DEXAMETHASONE [Suspect]
     Indication: MULTIPLE MYELOMA
  5. LENALIDOMIDE [Concomitant]
     Indication: LISTERIOSIS
  6. LENALIDOMIDE [Concomitant]
     Indication: MULTIPLE MYELOMA
  7. CYMBALTA [Concomitant]
  8. FENTANYL-100 [Concomitant]
  9. GABAPENTIN [Concomitant]
  10. OXYCODONE HCL [Concomitant]
  11. INVESTIGATIONAL DRUG [Concomitant]
     Indication: LISTERIOSIS
  12. INVESTIGATIONAL DRUG [Concomitant]
     Indication: MULTIPLE MYELOMA

REACTIONS (5)
  - LISTERIOSIS [None]
  - MEDICAL DEVICE COMPLICATION [None]
  - MULTIPLE MYELOMA [None]
  - PYREXIA [None]
  - RASH [None]
